FAERS Safety Report 14435823 (Version 2)
Quarter: 2018Q2

REPORT INFORMATION
  Report Type: Spontaneous
  Country: AR (occurrence: AR)
  Receive Date: 20180125
  Receipt Date: 20180419
  Transmission Date: 20180711
  Serious: Yes (Death, Hospitalization, Other)
  Sender: FDA-Public Use
  Company Number: AR-BRISTOL-MYERS SQUIBB COMPANY-BMS-2018-005353

PATIENT
  Age: 87 Year
  Sex: Female

DRUGS (1)
  1. ELIQUIS [Suspect]
     Active Substance: APIXABAN
     Indication: CEREBROVASCULAR ACCIDENT PROPHYLAXIS
     Dosage: 2.5 MG, UNK
     Route: 065
     Dates: start: 2016

REACTIONS (3)
  - Dyspnoea [Unknown]
  - Lung disorder [Unknown]
  - Death [Fatal]

NARRATIVE: CASE EVENT DATE: 20171101
